FAERS Safety Report 5310405-2 (Version None)
Quarter: 2007Q2

REPORT INFORMATION
  Report Type: 
  Country: None (occurrence: None)
  Receive Date: 20070427
  Receipt Date: 20070418
  Transmission Date: 20071010
  Serious: Yes (Hospitalization, Other)
  Sender: FDA-Public Use
  Company Number: GB-JNJFOC-20070306377

PATIENT
  Sex: Male
  Weight: 87 kg

DRUGS (10)
  1. REMICADE [Suspect]
     Indication: RHEUMATOID ARTHRITIS
     Route: 042
     Dates: start: 20030124, end: 20051230
  2. METHOTREXATE [Concomitant]
     Route: 065
  3. PREDNISOLONE [Concomitant]
     Route: 065
  4. AMILORIDE HYDROCHLORIDE [Concomitant]
     Route: 065
  5. CO-CODAMOL [Concomitant]
     Route: 065
  6. FOLIC ACID [Concomitant]
     Route: 065
  7. SLOW-K [Concomitant]
     Route: 065
  8. VOLTAREN [Concomitant]
     Route: 065
  9. ATORVASTATIN CALCIUM [Concomitant]
  10. METFORMIN HCL [Concomitant]

REACTIONS (2)
  - CELLULITIS [None]
  - OESOPHAGEAL CARCINOMA [None]
